FAERS Safety Report 19768344 (Version 4)
Quarter: 2021Q4

REPORT INFORMATION
  Report Type: Spontaneous
  Country: JP (occurrence: JP)
  Receive Date: 20210830
  Receipt Date: 20211012
  Transmission Date: 20220303
  Serious: Yes (Death, Other)
  Sender: FDA-Public Use
  Company Number: JP-CHUGAI-2021008812

PATIENT
  Age: 81 Year
  Sex: Male

DRUGS (3)
  1. TECENTRIQ [Suspect]
     Active Substance: ATEZOLIZUMAB
     Indication: Hepatocellular carcinoma
     Dosage: 1200 MILLIGRAM, SINGLE?ON 05/JUL/2021, LAST DOSE ADMINISTERED
     Route: 041
     Dates: start: 20210705, end: 20210705
  2. AVASTIN [Suspect]
     Active Substance: BEVACIZUMAB
     Indication: Hepatocellular carcinoma
     Dosage: 15 MILLIGRAM, SINGLE?ON 05/JUL/2021, LAST DOSE ADMINISTERED
     Route: 041
     Dates: start: 20210705
  3. ENTECAVIR [Concomitant]
     Active Substance: ENTECAVIR
     Indication: Hepatic cirrhosis
     Route: 065

REACTIONS (5)
  - Hepatocellular carcinoma [Fatal]
  - Opportunistic infection [Unknown]
  - Hepatic encephalopathy [Not Recovered/Not Resolved]
  - Hyperammonaemia [Not Recovered/Not Resolved]
  - Blood bilirubin increased [Not Recovered/Not Resolved]

NARRATIVE: CASE EVENT DATE: 20210726
